FAERS Safety Report 9185762 (Version 4)
Quarter: 2015Q1

REPORT INFORMATION
  Report Type: Spontaneous
  Country: FR (occurrence: FR)
  Receive Date: 20130325
  Receipt Date: 20150320
  Transmission Date: 20150721
  Serious: Yes (Other)
  Sender: FDA-Public Use
  Company Number: FR-AMGEN-FRASP2012015795

PATIENT
  Sex: Female
  Weight: 74 kg

DRUGS (7)
  1. CALCIPARINE [Concomitant]
     Active Substance: HEPARIN CALCIUM
     Dosage: 0.5 UNK, UNK
     Route: 058
     Dates: start: 20120501
  2. LEVOTHYROX [Concomitant]
     Active Substance: LEVOTHYROXINE
     Dosage: 100 MCG, QD
     Route: 048
  3. ARANESP [Suspect]
     Active Substance: DARBEPOETIN ALFA
     Indication: GLOMERULONEPHRITIS MEMBRANOUS
     Dosage: 40 MUG, Q2WK
     Route: 058
     Dates: start: 20120228
  4. CORTANCYL [Concomitant]
     Active Substance: PREDNISONE
     Dosage: 20 UNK, QD
     Route: 048
  5. LOXEN [Concomitant]
     Active Substance: NICARDIPINE HYDROCHLORIDE
     Indication: HYPERTENSION
     Dosage: 50 UNK, UNK
     Route: 048
     Dates: start: 20120523
  6. KARDEGIC [Concomitant]
     Active Substance: ASPIRIN LYSINE
     Dosage: 75 MG, QD
  7. PLAQUENIL [Concomitant]
     Active Substance: HYDROXYCHLOROQUINE SULFATE
     Dosage: 200 UNK, BID

REACTIONS (4)
  - Pregnancy [Recovered/Resolved]
  - Caesarean section [Unknown]
  - Pre-eclampsia [Unknown]
  - Oligohydramnios [Unknown]
